FAERS Safety Report 15075113 (Version 1)
Quarter: 2018Q2

REPORT INFORMATION
  Report Type: Spontaneous
  Country: US (occurrence: US)
  Receive Date: 20180627
  Receipt Date: 20180627
  Transmission Date: 20180711
  Serious: Yes (Other)
  Sender: FDA-Public Use
  Company Number: US-SAOL THERAPEUTICS-2017SAO03559

PATIENT
  Age: 49 Year
  Sex: Male
  Weight: 48.73 kg

DRUGS (3)
  1. COMPOUNDED BACLOFEN [Suspect]
     Active Substance: BACLOFEN
     Indication: CEREBRAL PALSY
     Dosage: 188.2 ?G, \DAY- MINIMUM RATE
     Route: 037
     Dates: start: 201712
  2. COMPOUNDED BACLOFEN [Suspect]
     Active Substance: BACLOFEN
     Dosage: 376.5 ?G, \DAY
     Dates: start: 201712
  3. COMPOUNDED BACLOFEN [Suspect]
     Active Substance: BACLOFEN
     Indication: MUSCLE SPASTICITY
     Dosage: 376.5 ?G, \DAY

REACTIONS (3)
  - Device kink [Recovered/Resolved]
  - Therapy non-responder [Recovered/Resolved]
  - Device failure [Recovered/Resolved]

NARRATIVE: CASE EVENT DATE: 201712
